FAERS Safety Report 6709378-7 (Version None)
Quarter: 2010Q2

REPORT INFORMATION
  Report Type: 
  Country: None (occurrence: None)
  Receive Date: 20100504
  Receipt Date: 20100422
  Transmission Date: 20101027
  Serious: Yes (Hospitalization)
  Sender: FDA-Public Use
  Company Number: PHHY2009DE29853

PATIENT
  Age: 49 Year
  Sex: Female
  Weight: 68.3 kg

DRUGS (20)
  1. SANDIMMUNE [Suspect]
     Indication: RENAL TRANSPLANT
     Dosage: 250 MG, BID
     Route: 048
     Dates: start: 20081101
  2. SANDIMMUNE [Suspect]
     Dosage: 125 MG, BID
     Route: 048
     Dates: start: 20090205
  3. SANDIMMUNE [Suspect]
     Dosage: 150 MG 2XD
     Route: 048
     Dates: start: 20090211
  4. CELLCEPT [Suspect]
     Indication: IMMUNOSUPPRESSION
     Dosage: 2000 MG/DAY
     Route: 048
     Dates: start: 20081101, end: 20090205
  5. CELLCEPT [Suspect]
     Dosage: 500 MG, BID
     Route: 048
     Dates: start: 20090209
  6. BEROTEC [Concomitant]
     Indication: ASTHMA
     Dosage: 100 UG, QD
     Dates: start: 20081101
  7. CALCIMAGON-D3 [Concomitant]
     Indication: OSTEOPOROSIS PROPHYLAXIS
     Dosage: 1 DF, QD
     Route: 048
     Dates: start: 20081101
  8. CIPROFLOXACIN [Concomitant]
     Indication: BRONCHITIS
     Dosage: 250 MG, BID
     Route: 048
     Dates: start: 20090115, end: 20090122
  9. ECOTRIN [Concomitant]
     Indication: PROPHYLAXIS
     Dosage: 1 DF, BID
     Route: 048
     Dates: start: 20081101
  10. MOXONIDINE [Concomitant]
     Indication: HYPERTENSION
     Dosage: 0.2MG
     Route: 048
     Dates: start: 20081101
  11. NEBIVOLOL [Concomitant]
     Indication: HYPERTENSION
     Dosage: 2.5 MG, QD
     Route: 048
     Dates: start: 20000101
  12. NEORECORMON [Concomitant]
     Indication: NEPHROGENIC ANAEMIA
     Dosage: 3000 IU, QD
     Route: 057
  13. PANTOZOL [Concomitant]
     Indication: PROPHYLAXIS AGAINST GASTROINTESTINAL ULCER
     Dosage: 40 MG, QD
     Dates: start: 20080101
  14. RAMIPRIL [Concomitant]
     Indication: HYPERTENSION
     Dosage: 2.5 MG, QD
     Route: 048
     Dates: start: 20081201
  15. TAVANIC [Concomitant]
     Indication: PNEUMONIA
     Dosage: 250 MG, BID
     Route: 048
     Dates: start: 20090128, end: 20090204
  16. VALCYTE [Concomitant]
     Indication: PROPHYLAXIS
     Dosage: 450 MG, QD
     Route: 048
     Dates: start: 20081101
  17. VALCYTE [Concomitant]
     Dosage: 450 MG, QD
     Route: 048
     Dates: start: 20090212
  18. VIANI [Concomitant]
     Dosage: 1 DF, BID
     Dates: start: 20000101
  19. PREDNISOLONE [Concomitant]
     Dosage: 45 MG
     Route: 048
     Dates: start: 20081101
  20. PREDNISOLONE [Concomitant]
     Dosage: 5 MG
     Route: 048
     Dates: start: 20090205

REACTIONS (10)
  - ABDOMINAL PAIN [None]
  - ABNORMAL FAECES [None]
  - ASTHMA [None]
  - CHILLS [None]
  - CYTOMEGALOVIRUS INFECTION [None]
  - FATIGUE [None]
  - HYPERHIDROSIS [None]
  - HYPOTONIA [None]
  - INFECTION [None]
  - PYREXIA [None]
